FAERS Safety Report 21299629 (Version 1)
Quarter: 2022Q3

REPORT INFORMATION
  Report Type: Spontaneous
  Country: None (occurrence: US)
  Receive Date: 20220906
  Receipt Date: 20220906
  Transmission Date: 20221027
  Serious: No
  Sender: FDA-Public Use
  Company Number: US-Breckenridge Pharmaceutical, Inc.-2132592

PATIENT
  Age: 87 Year
  Sex: Female
  Weight: 70.455 kg

DRUGS (9)
  1. RIVASTIGMINE TRANSDERMAL SYSTEM [Suspect]
     Active Substance: RIVASTIGMINE
     Indication: Memory impairment
     Route: 062
  2. LORAZEPAM [Concomitant]
     Active Substance: LORAZEPAM
  3. NORVASC [Concomitant]
     Active Substance: AMLODIPINE BESYLATE
  4. CLONAZEPAM [Concomitant]
     Active Substance: CLONAZEPAM
  5. VITAMIN D [Concomitant]
     Active Substance: VITAMIN D NOS
  6. REMERON [Concomitant]
     Active Substance: MIRTAZAPINE
  7. PEPCID [Concomitant]
     Active Substance: FAMOTIDINE
  8. PROTONIX [Concomitant]
     Active Substance: PANTOPRAZOLE SODIUM
  9. ZYRTEC [Concomitant]
     Active Substance: CETIRIZINE HYDROCHLORIDE

REACTIONS (4)
  - Neck pain [Unknown]
  - Oropharyngeal pain [Unknown]
  - Dyspnoea [Unknown]
  - Cough [Unknown]
